FAERS Safety Report 4855149-6 (Version None)
Quarter: 2005Q4

REPORT INFORMATION
  Report Type: 
  Country: None (occurrence: None)
  Receive Date: 20051125
  Receipt Date: 20050128
  Transmission Date: 20060501
  Serious: Yes (Disabling)
  Sender: FDA-Public Use
  Company Number: US-JNJFOC-20040304963

PATIENT
  Age: 52 Year
  Sex: Female
  Weight: 58.0604 kg

DRUGS (2)
  1. LEVAQUIN [Suspect]
     Indication: CYSTITIS
     Dosage: 500 MG, 1 IN 1 DAY
     Dates: start: 20040311, end: 20040318
  2. AMBIEN [Concomitant]

REACTIONS (4)
  - ABASIA [None]
  - INSOMNIA [None]
  - JOINT SWELLING [None]
  - PAIN IN EXTREMITY [None]
